FAERS Safety Report 8415345-8 (Version None)
Quarter: 2012Q2

REPORT INFORMATION
  Report Type: 
  Country: None (occurrence: None)
  Receive Date: 20120606
  Receipt Date: 20120529
  Transmission Date: 20120825
  Serious: Yes (Hospitalization, Other)
  Sender: FDA-Public Use
  Company Number: PHHY2012DE046049

PATIENT
  Sex: Female

DRUGS (2)
  1. HALDOL [Concomitant]
     Indication: SCHIZOPHRENIA
     Dosage: 10 MG, QD
     Route: 048
  2. CLOZAPINE [Suspect]
     Indication: SCHIZOPHRENIA
     Dosage: 300 MG,QD
     Route: 048
     Dates: end: 20120504

REACTIONS (7)
  - INFECTION [None]
  - C-REACTIVE PROTEIN INCREASED [None]
  - ANTIPSYCHOTIC DRUG LEVEL ABOVE THERAPEUTIC [None]
  - SCHIZOPHRENIA [None]
  - CONFUSIONAL STATE [None]
  - PLEURAL EFFUSION [None]
  - PERICARDIAL EFFUSION [None]
